FAERS Safety Report 18831326 (Version 1)
Quarter: 2021Q1

REPORT INFORMATION
  Report Type: Spontaneous
  Country: US (occurrence: US)
  Receive Date: 20210202
  Receipt Date: 20210202
  Transmission Date: 20210419
  Serious: Yes (Other)
  Sender: FDA-Public Use
  Company Number: None

PATIENT
  Age: 56 Year
  Sex: Female
  Weight: 58.97 kg

DRUGS (2)
  1. ESOMEPRAZOLE MAGNESIUM. [Suspect]
     Active Substance: ESOMEPRAZOLE MAGNESIUM
     Indication: BARRETT^S OESOPHAGUS
     Dosage: ?          OTHER FREQUENCY:1;?
     Route: 048
     Dates: start: 20171005, end: 20171014
  2. NEXIUM 24HR [Suspect]
     Active Substance: ESOMEPRAZOLE MAGNESIUM
     Indication: BARRETT^S OESOPHAGUS
     Dosage: ?          OTHER FREQUENCY:2;?
     Route: 048
     Dates: start: 20170901, end: 20170915

REACTIONS (4)
  - Product substitution issue [None]
  - Nausea [None]
  - Headache [None]
  - Dizziness [None]
